FAERS Safety Report 9233803 (Version 1)
Quarter: 2013Q2

REPORT INFORMATION
  Report Type: Spontaneous
  Country: US (occurrence: US)
  Receive Date: 20130416
  Receipt Date: 20130416
  Transmission Date: 20140414
  Serious: No
  Sender: FDA-Public Use
  Company Number: US-BANPHARM-20120027

PATIENT
  Age: 90 Year
  Sex: Female
  Weight: 51.81 kg

DRUGS (7)
  1. ALEVE LIQUID GELS 220 MG [Suspect]
     Indication: ARTHRITIS
     Dosage: 2 DF, IN A COUPLE OF HOURS
     Route: 048
     Dates: start: 2012, end: 2012
  2. MELOXICAM [Concomitant]
  3. SIMVASTATIN [Concomitant]
  4. LISINOPRIL [Concomitant]
  5. METOPROLOL [Concomitant]
  6. CALCIUM [Concomitant]
  7. MULTIVITAMIN [Concomitant]

REACTIONS (1)
  - Drug ineffective [Unknown]
